FAERS Safety Report 14011718 (Version 1)
Quarter: 2017Q3

REPORT INFORMATION
  Report Type: Report from Study
  Country: VN (occurrence: VN)
  Receive Date: 20170926
  Receipt Date: 20170926
  Transmission Date: 20171128
  Serious: Yes (Other)
  Sender: FDA-Public Use
  Company Number: VN-ASTELLAS-2017US013364

PATIENT
  Sex: Female

DRUGS (3)
  1. ZOLEDRONIC ACID [Concomitant]
     Active Substance: ZOLEDRONIC ACID
     Indication: PRODUCT USED FOR UNKNOWN INDICATION
     Route: 041
  2. ERLOTINIB [Suspect]
     Active Substance: ERLOTINIB
     Route: 048
  3. ERLOTINIB [Suspect]
     Active Substance: ERLOTINIB
     Indication: LUNG NEOPLASM MALIGNANT
     Route: 048

REACTIONS (4)
  - Peripheral swelling [Unknown]
  - Localised infection [Unknown]
  - Dermatitis acneiform [Recovering/Resolving]
  - Paronychia [Recovering/Resolving]
